FAERS Safety Report 24028507 (Version 1)
Quarter: 2024Q2

REPORT INFORMATION
  Report Type: Spontaneous
  Country: ES (occurrence: ES)
  Receive Date: 20240628
  Receipt Date: 20240628
  Transmission Date: 20240716
  Serious: Yes (Hospitalization, Disabling)
  Sender: FDA-Public Use
  Company Number: ES-AEMPS-1504298

PATIENT
  Age: 48 Year
  Sex: Male
  Weight: 89 kg

DRUGS (6)
  1. OXALIPLATIN [Suspect]
     Active Substance: OXALIPLATIN
     Indication: Oesophageal neoplasm
     Dosage: 170 MILLIGRAM, CYCLICAL
     Route: 040
     Dates: start: 20231107
  2. OPDIVO [Suspect]
     Active Substance: NIVOLUMAB
     Indication: Oesophageal neoplasm
     Dosage: 240 MILLIGRAM, CYCLICAL
     Route: 040
     Dates: start: 20231205, end: 20240209
  3. FLUOROURACIL [Suspect]
     Active Substance: FLUOROURACIL
     Indication: Oesophageal neoplasm
     Dosage: 5720 MILLIGRAM, CYCLICAL
     Route: 040
     Dates: start: 20231107, end: 20240209
  4. OMEPRAZOL KERN PHARMA [Concomitant]
     Indication: Product used for unknown indication
     Dosage: 20 MILLIGRAM, DAILY
     Route: 048
     Dates: start: 20240110
  5. LEUCOVORIN [Concomitant]
     Active Substance: LEUCOVORIN\LEUCOVORIN CALCIUM
     Indication: Oesophageal neoplasm
     Dosage: 820 MILLIGRAM, CYCLICAL
     Route: 040
     Dates: start: 20231107, end: 20240209
  6. ZOLPIDEM TARTRATE [Concomitant]
     Active Substance: ZOLPIDEM TARTRATE
     Indication: Product used for unknown indication
     Dosage: 10 MILLIGRAM, DAILY
     Route: 048
     Dates: start: 20240125

REACTIONS (4)
  - Peripheral artery thrombosis [Recovered/Resolved with Sequelae]
  - Foot amputation [Recovered/Resolved with Sequelae]
  - Necrosis [Recovered/Resolved with Sequelae]
  - Embolism [Recovered/Resolved with Sequelae]

NARRATIVE: CASE EVENT DATE: 20240214
